FAERS Safety Report 8350554-8 (Version None)
Quarter: 2012Q2

REPORT INFORMATION
  Report Type: 
  Country: None (occurrence: None)
  Receive Date: 20120510
  Receipt Date: 20120507
  Transmission Date: 20120825
  Serious: Yes (Life-Threatening)
  Sender: FDA-Public Use
  Company Number: US-BRISTOL-MYERS SQUIBB COMPANY-16545378

PATIENT
  Age: 35 Year
  Sex: Female

DRUGS (7)
  1. SINGULAIR [Concomitant]
  2. MIDODRINE HYDROCHLORIDE [Concomitant]
     Dosage: ALSO RECEIVED 2.5 MG TWICE DAILY
  3. ABILIFY [Suspect]
     Indication: BIPOLAR DISORDER
     Dosage: 15 MG:FOR 5 WEEKS 10MG,HS
     Route: 048
  4. COGENTIN [Concomitant]
     Dosage: 1 DOSAGE FORM: 1/2 TO 1 MG
  5. PROAIR HFA [Concomitant]
  6. ADVAIR DISKUS 100/50 [Concomitant]
     Dosage: 1DF=500/50 UNITS NOS
  7. TOPAMAX [Concomitant]

REACTIONS (1)
  - HYPOKALAEMIA [None]
